FAERS Safety Report 6445070-4 (Version None)
Quarter: 2009Q4

REPORT INFORMATION
  Report Type: 
  Country: None (occurrence: None)
  Receive Date: 20091118
  Receipt Date: 20091103
  Transmission Date: 20100525
  Serious: Yes (Disabling, Other)
  Sender: FDA-Public Use
  Company Number: US-SANOFI-AVENTIS-A03200903586

PATIENT
  Age: 48 Year
  Sex: Male
  Weight: 90.9 kg

DRUGS (17)
  1. CLOPIDOGREL BISULFATE [Suspect]
     Dosage: UNIT DOSE: 75 MG
     Route: 048
     Dates: start: 20080301, end: 20090301
  2. CLOPIDOGREL BISULFATE [Suspect]
     Indication: STENT PLACEMENT
     Dosage: UNIT DOSE: 75 MG
     Route: 048
     Dates: start: 20080301, end: 20090301
  3. CLOPIDOGREL BISULFATE [Suspect]
     Indication: CORONARY ARTERY DISEASE
     Dosage: UNIT DOSE: 75 MG
     Route: 048
     Dates: start: 20080301, end: 20090301
  4. CLOPIDOGREL BISULFATE [Suspect]
     Dosage: UNIT DOSE: 75 MG
     Route: 048
     Dates: start: 20090301, end: 20090101
  5. CLOPIDOGREL BISULFATE [Suspect]
     Dosage: UNIT DOSE: 75 MG
     Route: 048
     Dates: start: 20090301, end: 20090101
  6. CLOPIDOGREL BISULFATE [Suspect]
     Dosage: UNIT DOSE: 75 MG
     Route: 048
     Dates: start: 20090301, end: 20090101
  7. CLOPIDOGREL BISULFATE [Suspect]
     Dosage: UNIT DOSE: 75 MG
     Route: 048
     Dates: start: 20090101, end: 20090815
  8. CLOPIDOGREL BISULFATE [Suspect]
     Dosage: UNIT DOSE: 75 MG
     Route: 048
     Dates: start: 20090101, end: 20090815
  9. CLOPIDOGREL BISULFATE [Suspect]
     Dosage: UNIT DOSE: 75 MG
     Route: 048
     Dates: start: 20090101, end: 20090815
  10. ASPIRIN [Suspect]
     Dosage: UNIT DOSE: 81 MG
     Route: 048
     Dates: start: 20080301, end: 20090301
  11. ASPIRIN [Suspect]
     Dosage: UNIT DOSE: 81 MG
     Route: 048
     Dates: start: 20090301
  12. VYTORIN [Concomitant]
  13. METOPROLOL [Concomitant]
  14. OMEPRAZOLE [Concomitant]
     Indication: GASTROINTESTINAL PAIN
     Dosage: DOSE TEXT: OVER THE COUNTER
  15. RANITIDINE [Concomitant]
     Indication: GASTROINTESTINAL PAIN
     Dosage: DOSE TEXT: OVER THE COUNTER
  16. LISINOPRIL [Concomitant]
  17. TYLENOL (CAPLET) [Concomitant]
     Dosage: DOSE TEXT: A LOT

REACTIONS (6)
  - ARTHRALGIA [None]
  - CORONARY ARTERY THROMBOSIS [None]
  - DRUG INEFFECTIVE [None]
  - MYOCARDIAL INFARCTION [None]
  - OVERDOSE [None]
  - RHEUMATOID ARTHRITIS [None]
